FAERS Safety Report 21844774 (Version 2)
Quarter: 2023Q1

REPORT INFORMATION
  Report Type: Report from Study
  Country: US (occurrence: US)
  Receive Date: 20230110
  Receipt Date: 20230216
  Transmission Date: 20230417
  Serious: Yes (Death, Other)
  Sender: FDA-Public Use
  Company Number: US-GILEAD-2023-0611930

PATIENT
  Age: 50 Year
  Sex: Male

DRUGS (1)
  1. REMDESIVIR [Suspect]
     Active Substance: REMDESIVIR
     Indication: COVID-19
     Dosage: 600 MG, 5 DAYS
     Route: 042
     Dates: start: 20210927, end: 20211010

REACTIONS (6)
  - Death [Fatal]
  - Renal failure [Unknown]
  - Aspiration [Unknown]
  - Oxygen saturation decreased [Unknown]
  - Analgesic therapy [Unknown]
  - Sedation [Unknown]

NARRATIVE: CASE EVENT DATE: 20211002
